FAERS Safety Report 6270946-0 (Version None)
Quarter: 2009Q3

REPORT INFORMATION
  Report Type: 
  Country: None (occurrence: None)
  Receive Date: 20090716
  Receipt Date: 20090709
  Transmission Date: 20100115
  Serious: Yes (Hospitalization)
  Sender: FDA-Public Use
  Company Number: US-ELI_LILLY_AND_COMPANY-US200907001884

PATIENT
  Sex: Female

DRUGS (1)
  1. FORTEO [Suspect]
     Dates: start: 20090501, end: 20090501

REACTIONS (5)
  - BACK DISORDER [None]
  - BACK PAIN [None]
  - HOSPITALISATION [None]
  - MUSCLE SPASMS [None]
  - THORACIC VERTEBRAL FRACTURE [None]
